FAERS Safety Report 10332184 (Version 1)
Quarter: 2014Q3

REPORT INFORMATION
  Report Type: Spontaneous
  Country: US (occurrence: US)
  Receive Date: 20140722
  Receipt Date: 20140722
  Transmission Date: 20150326
  Serious: Yes (Hospitalization)
  Sender: FDA-Public Use
  Company Number: US-BRISTOL-MYERS SQUIBB COMPANY-21204110

PATIENT
  Age: 26 Year
  Sex: Male

DRUGS (7)
  1. ABILIFY [Suspect]
     Active Substance: ARIPIPRAZOLE
     Indication: PSYCHOTIC DISORDER
  2. KLONOPIN [Concomitant]
     Active Substance: CLONAZEPAM
  3. HALDOL [Concomitant]
     Active Substance: HALOPERIDOL
  4. STRATTERA [Concomitant]
     Active Substance: ATOMOXETINE HYDROCHLORIDE
  5. THORAZINE [Concomitant]
     Active Substance: CHLORPROMAZINE
  6. NEURONTIN [Concomitant]
     Active Substance: GABAPENTIN
  7. SOMA [Concomitant]
     Active Substance: CARISOPRODOL

REACTIONS (3)
  - Suicidal ideation [Unknown]
  - Off label use [Unknown]
  - Psychotic disorder [Unknown]
